FAERS Safety Report 7231122-8 (Version None)
Quarter: 2011Q1

REPORT INFORMATION
  Report Type: 
  Country: None (occurrence: None)
  Receive Date: 20110118
  Receipt Date: 20110112
  Transmission Date: 20110831
  Serious: Yes (Life-Threatening, Hospitalization, Disabling)
  Sender: FDA-Public Use
  Company Number: PHHO2011MX01180

PATIENT
  Sex: Male

DRUGS (4)
  1. AFINITOR [Suspect]
     Dosage: 10 MG, UNK
     Route: 048
     Dates: start: 20100430, end: 20100430
  2. PIRACETAM [Concomitant]
  3. METOCLOPRAMIDE [Concomitant]
  4. PREDNISONE [Concomitant]

REACTIONS (1)
  - ENCEPHALOPATHY [None]
